FAERS Safety Report 9707808 (Version 1)
Quarter: 2013Q4

REPORT INFORMATION
  Report Type: Spontaneous
  Country: US (occurrence: None)
  Receive Date: 20131122
  Receipt Date: 20131122
  Transmission Date: 20140711
  Serious: Yes (Hospitalization)
  Sender: FDA-Public Use
  Company Number: None

PATIENT
  Age: 13 Year
  Sex: Female

DRUGS (1)
  1. MONTELUKAST [Suspect]
     Indication: MULTIPLE ALLERGIES
     Dosage: ONE DAILY?DURATION: ONE YEAR APPROX

REACTIONS (2)
  - Convulsion [None]
  - Palpitations [None]
